FAERS Safety Report 12447630 (Version 1)
Quarter: 2016Q2

REPORT INFORMATION
  Report Type: Spontaneous
  Country: None (occurrence: None)
  Receive Date: 20160607
  Receipt Date: 20160607
  Transmission Date: 20160815
  Serious: No
  Sender: FDA-Public Use
  Company Number: None

PATIENT
  Sex: Female

DRUGS (1)
  1. GABAPENTIN TABLETS, 600MG GLENMARK [Suspect]
     Active Substance: GABAPENTIN
     Route: 048

REACTIONS (1)
  - Drug ineffective [None]
